FAERS Safety Report 24819331 (Version 1)
Quarter: 2025Q1

REPORT INFORMATION
  Report Type: Spontaneous
  Country: US (occurrence: US)
  Receive Date: 20250108
  Receipt Date: 20250108
  Transmission Date: 20250409
  Serious: Yes (Death)
  Sender: PFIZER
  Company Number: US-PFIZER INC-202500002724

PATIENT
  Age: 90 Year
  Sex: Male
  Weight: 47.173 kg

DRUGS (1)
  1. VYNDAMAX [Suspect]
     Active Substance: TAFAMIDIS
     Indication: Cardiac disorder
     Dosage: IN THE MORNING
     Route: 048

REACTIONS (2)
  - Cardiac failure [Fatal]
  - Weight decreased [Unknown]

NARRATIVE: CASE EVENT DATE: 20240715
